FAERS Safety Report 5212580-7 (Version None)
Quarter: 2007Q1

REPORT INFORMATION
  Report Type: 
  Country: None (occurrence: None)
  Receive Date: 20070118
  Receipt Date: 20070109
  Transmission Date: 20070707
  Serious: Yes (Hospitalization, Other)
  Sender: FDA-Public Use
  Company Number: GB-PFIZER INC-2006155469

PATIENT
  Age: 74 Year
  Sex: Male

DRUGS (3)
  1. VIAGRA [Suspect]
     Indication: ERECTILE DYSFUNCTION
     Route: 048
  2. CARVEDILOL [Interacting]
     Indication: OEDEMA
     Dosage: DAILY DOSE:3.125MG
  3. FUROSEMIDE [Interacting]
     Dosage: DAILY DOSE:20MG

REACTIONS (4)
  - DRUG INEFFECTIVE [None]
  - DRUG INTERACTION [None]
  - HIP ARTHROPLASTY [None]
  - OEDEMA [None]
